FAERS Safety Report 6691367-2 (Version None)
Quarter: 2010Q2

REPORT INFORMATION
  Report Type: 
  Country: None (occurrence: None)
  Receive Date: 20100422
  Receipt Date: 20100412
  Transmission Date: 20101027
  Serious: Yes (Other)
  Sender: FDA-Public Use
  Company Number: US-TYCO HEALTHCARE/MALLINCKRODT-T201000957

PATIENT
  Sex: Female

DRUGS (3)
  1. METHADONE HCL [Suspect]
     Indication: PAIN
     Dosage: 1/2 TAB BID
  2. BENZODIAZEPINE DERIVATIVES [Concomitant]
     Dosage: LOW DOSE
  3. BOTOX [Concomitant]
     Dosage: UNK, Q 3 MONTHS

REACTIONS (5)
  - BLINDNESS [None]
  - DIZZINESS [None]
  - NAUSEA [None]
  - SUICIDAL IDEATION [None]
  - VOMITING [None]
